FAERS Safety Report 9349737 (Version 1)
Quarter: 2013Q2

REPORT INFORMATION
  Report Type: Spontaneous
  Country: BR (occurrence: BR)
  Receive Date: 20130614
  Receipt Date: 20130614
  Transmission Date: 20140414
  Serious: Yes (Other)
  Sender: FDA-Public Use
  Company Number: BR-PFIZER INC-2013176472

PATIENT
  Sex: Male

DRUGS (2)
  1. CITALOR [Suspect]
     Dosage: UNK
     Route: 048
     Dates: start: 2007, end: 201209
  2. LIPITOR [Suspect]
     Dosage: 20 MG, UNK
     Route: 048
     Dates: start: 201209

REACTIONS (3)
  - Cardiac disorder [Unknown]
  - Pain [Not Recovered/Not Resolved]
  - Arthralgia [Unknown]
